FAERS Safety Report 8569195 (Version 3)
Quarter: 2013Q2

REPORT INFORMATION
  Report Type: Spontaneous
  Country: US (occurrence: US)
  Receive Date: 20120518
  Receipt Date: 20130502
  Transmission Date: 20140414
  Serious: Yes (Other)
  Sender: FDA-Public Use
  Company Number: US-ALEXION-A201200396

PATIENT
  Age: 20 Year
  Sex: Female
  Weight: 66.67 kg

DRUGS (8)
  1. SOLIRIS 300MG [Suspect]
     Indication: PAROXYSMAL NOCTURNAL HAEMOGLOBINURIA
     Dosage: 600 MG, QW
     Route: 042
     Dates: start: 201106
  2. SOLIRIS 300MG [Suspect]
     Dosage: 900 MG, Q2W
     Route: 042
  3. SOLIRIS 300MG [Suspect]
     Dosage: 1200 MG, Q2W
     Route: 042
     Dates: start: 201203
  4. SOLIRIS 300MG [Suspect]
     Dosage: 900 MG, QW
     Route: 042
  5. PREDNISONE [Concomitant]
     Dosage: 40 MG, QD
     Route: 048
     Dates: end: 20120314
  6. LOVENOX [Concomitant]
     Dosage: 60 MG, BID
     Route: 058
  7. FOLIC ACID [Concomitant]
     Dosage: 1 MG, QD
     Route: 048
  8. IRON SULFATE [Concomitant]
     Dosage: UNK

REACTIONS (2)
  - Haemolysis [Recovered/Resolved]
  - Exposure during pregnancy [Recovered/Resolved]
